FAERS Safety Report 13271911 (Version 1)
Quarter: 2017Q1

REPORT INFORMATION
  Report Type: Other
  Country: US (occurrence: US)
  Receive Date: 20170227
  Receipt Date: 20170227
  Transmission Date: 20170428
  Serious: Yes (Hospitalization)
  Sender: FDA-Public Use
  Company Number: US-VELOXIS PHARMACEUTICALS-1063609

PATIENT
  Age: 19 Year
  Sex: Female

DRUGS (12)
  1. ENVARSUS XR [Suspect]
     Active Substance: TACROLIMUS
  2. METHYLPREDNISOLONE. [Concomitant]
     Active Substance: METHYLPREDNISOLONE
  3. HYDROCORTISONE. [Concomitant]
     Active Substance: HYDROCORTISONE
  4. LEUPROLIDE [Concomitant]
     Active Substance: LEUPROLIDE
  5. METHOTREXATE (METHOTREXATE SODIUM) [Suspect]
     Active Substance: METHOTREXATE SODIUM
  6. FLUCONAZOLE. [Concomitant]
     Active Substance: FLUCONAZOLE
  7. ACYCLOVIR. [Concomitant]
     Active Substance: ACYCLOVIR
  8. ATGAM [Suspect]
     Active Substance: EQUINE THYMOCYTE IMMUNE GLOBULIN
     Route: 042
  9. LEVOFLOXACIN. [Concomitant]
     Active Substance: LEVOFLOXACIN
  10. ACETAMINOPHEN. [Concomitant]
     Active Substance: ACETAMINOPHEN
  11. CYCLOPHOSPHAMIDE. [Concomitant]
     Active Substance: CYCLOPHOSPHAMIDE
  12. DIPHENHYDRAMINE HYDROCHLORIDE. [Concomitant]
     Active Substance: DIPHENHYDRAMINE HYDROCHLORIDE

REACTIONS (4)
  - Febrile neutropenia [Recovered/Resolved]
  - Vaginal haemorrhage [Recovered/Resolved]
  - Engraftment syndrome [Recovered/Resolved]
  - Off label use [Recovered/Resolved]
